FAERS Safety Report 18462162 (Version 1)
Quarter: 2020Q4

REPORT INFORMATION
  Report Type: Spontaneous
  Country: US (occurrence: US)
  Receive Date: 20201103
  Receipt Date: 20201103
  Transmission Date: 20210114
  Serious: Yes (Other)
  Sender: FDA-Public Use
  Company Number: None

PATIENT
  Age: 60 Year
  Sex: Male

DRUGS (3)
  1. HYDROXYUREA. [Suspect]
     Active Substance: HYDROXYUREA
     Indication: MYELOFIBROSIS
     Route: 048
     Dates: start: 20200909
  2. PREDNISONE. [Concomitant]
     Active Substance: PREDNISONE
  3. JAKAFI [Concomitant]
     Active Substance: RUXOLITINIB
     Dates: start: 20200915

REACTIONS (1)
  - Nausea [None]

NARRATIVE: CASE EVENT DATE: 20201008
